FAERS Safety Report 4312419-8 (Version None)
Quarter: 2004Q1

REPORT INFORMATION
  Report Type: 
  Country: None (occurrence: None)
  Receive Date: 20040305
  Receipt Date: 20040305
  Transmission Date: 20041129
  Serious: No
  Sender: FDA-Public Use
  Company Number: None

PATIENT
  Age: 82 Year
  Sex: Female
  Weight: 84.36 kg

DRUGS (1)
  1. HYDROCODONE  / APAP [Suspect]
     Indication: CELLULITIS
     Dosage: 7.5 PO
     Route: 048

REACTIONS (1)
  - LETHARGY [None]
